FAERS Safety Report 10076860 (Version 2)
Quarter: 2014Q2

REPORT INFORMATION
  Report Type: Spontaneous
  Country: DE (occurrence: DE)
  Receive Date: 20140414
  Receipt Date: 20140617
  Transmission Date: 20141212
  Serious: Yes (Death, Life-Threatening, Hospitalization)
  Sender: FDA-Public Use
  Company Number: DE-SA-2014SA042212

PATIENT
  Age: 74 Year
  Sex: Female
  Weight: 86 kg

DRUGS (15)
  1. PLAVIX [Suspect]
     Indication: CORONARY ARTERIAL STENT INSERTION
     Route: 048
     Dates: start: 20130912, end: 20131105
  2. PRAVASTATIN SODIUM [Suspect]
     Indication: HYPERLIPIDAEMIA
     Route: 048
     Dates: start: 200901, end: 20131105
  3. AMITRIPTYLIN [Suspect]
     Indication: PAIN
     Route: 065
     Dates: start: 201309
  4. ACETYLSALICYLIC ACID [Concomitant]
     Indication: ARTERIAL OCCLUSIVE DISEASE
     Route: 048
     Dates: start: 20090108, end: 20140103
  5. PANTOPRAZOLE [Concomitant]
     Indication: GASTRITIS PROPHYLAXIS
     Route: 048
     Dates: start: 200901
  6. TORASEMIDE [Concomitant]
     Indication: HYPERTENSION
     Route: 048
     Dates: start: 2009
  7. BISOPROLOL [Concomitant]
     Indication: HYPERTENSION
     Route: 048
     Dates: start: 200901
  8. RAMIPRIL [Concomitant]
     Indication: HYPERTENSION
     Route: 048
     Dates: start: 200901
  9. ALLOPURINOL [Concomitant]
     Indication: HYPERURICAEMIA
     Route: 048
     Dates: start: 200901
  10. LERCANIDIPINE [Concomitant]
     Indication: HYPERTENSION
     Route: 048
     Dates: start: 200901
  11. COLECALCIFEROL [Concomitant]
  12. PREGABALIN [Concomitant]
     Route: 048
     Dates: start: 20130923
  13. METAMIZOLE [Concomitant]
  14. MOXONIDINE [Concomitant]
     Route: 048
     Dates: start: 20130923
  15. MOVICOL [Concomitant]
     Dates: start: 20130923

REACTIONS (1)
  - Acute hepatic failure [Fatal]
